FAERS Safety Report 6303413-6 (Version None)
Quarter: 2009Q3

REPORT INFORMATION
  Report Type: 
  Country: None (occurrence: None)
  Receive Date: 20090810
  Receipt Date: 20090729
  Transmission Date: 20100115
  Serious: Yes (Other)
  Sender: FDA-Public Use
  Company Number: JP-PFIZER INC-2009248519

PATIENT
  Age: 60 Year

DRUGS (2)
  1. DIFLUCAN [Suspect]
     Indication: INFECTION PROPHYLAXIS
     Dosage: 200 MG, 1X/DAY
     Dates: start: 20090201
  2. NOVANTRON ^NIHON LEDERLE^ [Concomitant]
     Indication: LEUKAEMIA
     Dosage: UNK
     Route: 042

REACTIONS (1)
  - ARRHYTHMIA [None]
